FAERS Safety Report 8839557 (Version 1)
Quarter: 2012Q4

REPORT INFORMATION
  Report Type: Spontaneous
  Country: US (occurrence: None)
  Receive Date: 20121012
  Receipt Date: 20121012
  Transmission Date: 20130627
  Serious: No
  Sender: FDA-Public Use
  Company Number: None

PATIENT
  Age: 36 Year
  Sex: Male
  Weight: 86.8 kg

DRUGS (2)
  1. LAPATINIB [Suspect]
     Indication: DIARRHEA
     Route: 048
     Dates: start: 20120606, end: 20120705
  2. TRASTUZUMAB [Suspect]
     Indication: DIARRHEA
     Route: 042
     Dates: start: 20111111, end: 20120706

REACTIONS (3)
  - Diarrhoea [None]
  - Nausea [None]
  - Vomiting [None]
